FAERS Safety Report 8364752-0 (Version None)
Quarter: 2012Q2

REPORT INFORMATION
  Report Type: 
  Country: None (occurrence: None)
  Receive Date: 20120516
  Receipt Date: 20120503
  Transmission Date: 20120825
  Serious: Yes (Other)
  Sender: FDA-Public Use
  Company Number: US-ROCHE-1064989

PATIENT
  Sex: Male
  Weight: 124.4 kg

DRUGS (10)
  1. DOCUSATE SODIUM/SENNOSIDES [Concomitant]
  2. ATENOLOL [Concomitant]
     Dates: start: 20050121
  3. HYDROMORPHONE HCL [Concomitant]
     Route: 048
     Dates: start: 20120501
  4. XELODA [Suspect]
     Indication: COLON CANCER
     Route: 048
     Dates: start: 20100322, end: 20100424
  5. M.V.I. [Concomitant]
     Route: 048
  6. QUINAPRIL [Concomitant]
     Dates: start: 20030121
  7. GLYBURIDE AND METFORMIN HYDROCHLORIDE [Concomitant]
     Dosage: 2.5/500 MG
     Dates: start: 20091121
  8. XELODA [Suspect]
     Route: 048
     Dates: start: 20120222
  9. ACETAMINOPHEN AND HYDROCODONE BITARTRATE [Concomitant]
     Dosage: 10/325
     Route: 048
     Dates: start: 20120131
  10. DIHYDROTACHYSTEROL [Concomitant]
     Route: 048

REACTIONS (4)
  - NEOPLASM [None]
  - NO THERAPEUTIC RESPONSE [None]
  - DISEASE PROGRESSION [None]
  - CONSTIPATION [None]
